FAERS Safety Report 14950439 (Version 1)
Quarter: 2018Q2

REPORT INFORMATION
  Report Type: Spontaneous
  Country: US (occurrence: US)
  Receive Date: 20180530
  Receipt Date: 20180530
  Transmission Date: 20180711
  Serious: No
  Sender: FDA-Public Use
  Company Number: US-JNJFOC-20180509458

PATIENT
  Sex: Male

DRUGS (10)
  1. TRAMADOL. [Suspect]
     Active Substance: TRAMADOL
     Indication: INSOMNIA
     Route: 065
  2. ULTRAM [Suspect]
     Active Substance: TRAMADOL HYDROCHLORIDE
     Indication: BLOOD PRESSURE MEASUREMENT
     Route: 065
  3. TRAMADOL. [Suspect]
     Active Substance: TRAMADOL
     Indication: DISCOMFORT
     Route: 065
  4. TRAMADOL. [Suspect]
     Active Substance: TRAMADOL
     Indication: BLOOD PRESSURE MEASUREMENT
     Route: 065
  5. TRAMADOL. [Suspect]
     Active Substance: TRAMADOL
     Indication: PAIN
     Route: 065
  6. TRAMADOL. [Suspect]
     Active Substance: TRAMADOL
     Indication: INSOMNIA
     Route: 065
  7. TRAMADOL. [Suspect]
     Active Substance: TRAMADOL
     Indication: BLOOD PRESSURE MEASUREMENT
     Route: 065
  8. TRAMADOL. [Suspect]
     Active Substance: TRAMADOL
     Indication: PAIN
     Route: 065
  9. TRAMADOL. [Suspect]
     Active Substance: TRAMADOL
     Indication: DISCOMFORT
     Route: 065
  10. ULTRAM [Suspect]
     Active Substance: TRAMADOL HYDROCHLORIDE
     Indication: PAIN
     Route: 065

REACTIONS (5)
  - Discomfort [Unknown]
  - Micturition disorder [Unknown]
  - Adverse event [Unknown]
  - Product use in unapproved indication [Unknown]
  - Off label use [Unknown]
